FAERS Safety Report 5371431-0 (Version None)
Quarter: 2007Q2

REPORT INFORMATION
  Report Type: 
  Country: None (occurrence: None)
  Receive Date: 20070622
  Receipt Date: 20070613
  Transmission Date: 20071010
  Serious: Yes (Hospitalization)
  Sender: FDA-Public Use
  Company Number: TPA2007A00918

PATIENT
  Age: 80 Year
  Sex: Female

DRUGS (6)
  1. ACTOS [Suspect]
     Indication: DIABETES MELLITUS
     Dosage: SEE IMAGE; PER ORAL
     Route: 048
     Dates: start: 20050726, end: 20060406
  2. ACTOS [Suspect]
     Indication: DIABETES MELLITUS
     Dosage: SEE IMAGE; PER ORAL
     Route: 048
     Dates: start: 20060406, end: 20060713
  3. ACTOS [Suspect]
     Indication: DIABETES MELLITUS
     Dosage: SEE IMAGE; PER ORAL
     Route: 048
     Dates: start: 20060713, end: 20061017
  4. EXENATIDE (ALL OTHER THEAPEUTIC PRODUCTS ) (0.25 MILLIGRAM/MILLILITERS [Suspect]
     Indication: DIABETES MELLITUS NON-INSULIN-DEPENDENT
     Dosage: SEE IMAGE; SUBCUTANEOUS
     Route: 058
     Dates: start: 20051201, end: 20070201
  5. EXENATIDE (ALL OTHER THEAPEUTIC PRODUCTS ) (0.25 MILLIGRAM/MILLILITERS [Suspect]
     Indication: DIABETES MELLITUS NON-INSULIN-DEPENDENT
     Dosage: SEE IMAGE; SUBCUTANEOUS
     Route: 058
     Dates: start: 20070201
  6. METFORMIN (METFORMIN) [Concomitant]

REACTIONS (4)
  - BLOOD GLUCOSE INCREASED [None]
  - ENDOMETRIAL CANCER [None]
  - LYMPHOEDEMA [None]
  - UTERINE CANCER [None]
